FAERS Safety Report 21763613 (Version 3)
Quarter: 2023Q1

REPORT INFORMATION
  Report Type: Report from Study
  Country: US (occurrence: US)
  Receive Date: 20221222
  Receipt Date: 20230309
  Transmission Date: 20230418
  Serious: No
  Sender: FDA-Public Use
  Company Number: US-002147023-NVSC2022US292876

PATIENT
  Sex: Female

DRUGS (1)
  1. KESIMPTA [Suspect]
     Active Substance: OFATUMUMAB
     Indication: Product used for unknown indication
     Dosage: UNK
     Route: 065
     Dates: start: 20220213

REACTIONS (8)
  - Balance disorder [Unknown]
  - Thyroid disorder [Unknown]
  - Headache [Unknown]
  - Diplopia [Unknown]
  - Condition aggravated [Unknown]
  - Device malfunction [Unknown]
  - Drug dose omission by device [Unknown]
  - Product dose omission issue [Unknown]
